FAERS Safety Report 5759216-4 (Version None)
Quarter: 2008Q2

REPORT INFORMATION
  Report Type: 
  Country: None (occurrence: None)
  Receive Date: 20080604
  Receipt Date: 20080523
  Transmission Date: 20081010
  Serious: Yes (Other)
  Sender: FDA-Public Use
  Company Number: BE-PFIZER INC-2008044695

PATIENT
  Sex: Female
  Weight: 73 kg

DRUGS (1)
  1. ZYVOXID TABLET [Suspect]
     Indication: STAPHYLOCOCCAL INFECTION
     Route: 048
     Dates: start: 20080322, end: 20080430

REACTIONS (8)
  - ANAEMIA [None]
  - DERMATITIS [None]
  - DRY MOUTH [None]
  - DYSPEPSIA [None]
  - FATIGUE [None]
  - GLOSSITIS [None]
  - RASH [None]
  - THIRST [None]
